FAERS Safety Report 20074493 (Version 1)
Quarter: 2021Q4

REPORT INFORMATION
  Report Type: Spontaneous
  Country: US (occurrence: None)
  Receive Date: 20211115
  Receipt Date: 20211115
  Transmission Date: 20220304
  Serious: Yes (Disabling)
  Sender: FDA-Public Use
  Company Number: None

PATIENT
  Age: 25 Year
  Sex: Male
  Weight: 75.6 kg

DRUGS (3)
  1. METHYLPHENIDATE HYDROCHLORIDE [Suspect]
     Active Substance: METHYLPHENIDATE HYDROCHLORIDE
     Indication: Attention deficit hyperactivity disorder
     Dosage: OTHER QUANTITY : 60 TABLET(S);?
     Route: 048
     Dates: start: 20211107, end: 20211115
  2. ESCITALOPRAM OXALATE [Concomitant]
     Active Substance: ESCITALOPRAM OXALATE
  3. meatonin [Concomitant]

REACTIONS (10)
  - Attention deficit hyperactivity disorder [None]
  - Product substitution issue [None]
  - Disease recurrence [None]
  - Nightmare [None]
  - Drug ineffective [None]
  - Insomnia [None]
  - Irritability [None]
  - Hyperphagia [None]
  - Disturbance in attention [None]
  - Appetite disorder [None]

NARRATIVE: CASE EVENT DATE: 20211111
